FAERS Safety Report 5580144-1 (Version None)
Quarter: 2007Q4

REPORT INFORMATION
  Report Type: 
  Country: None (occurrence: None)
  Receive Date: 20071228
  Receipt Date: 20071214
  Transmission Date: 20080405
  Serious: Yes (Other)
  Sender: FDA-Public Use
  Company Number: 2007S1013563

PATIENT
  Age: 1 Day
  Sex: Male

DRUGS (1)
  1. LORAZEPAM [Suspect]
     Indication: DEPRESSION

REACTIONS (7)
  - CYANOSIS NEONATAL [None]
  - DRUG EXPOSURE DURING PREGNANCY [None]
  - HYPOTONIA NEONATAL [None]
  - INFANTILE APNOEIC ATTACK [None]
  - METABOLIC DISORDER [None]
  - NEONATAL DISORDER [None]
  - POOR SUCKING REFLEX [None]
